FAERS Safety Report 10010010 (Version 2)
Quarter: 2014Q1

REPORT INFORMATION
  Report Type: Spontaneous
  Country: US (occurrence: US)
  Receive Date: 20140312
  Receipt Date: 20140312
  Transmission Date: 20141002
  Serious: No
  Sender: FDA-Public Use
  Company Number: US-INCYTE CORPORATION-2013IN000964

PATIENT
  Age: 79 Year
  Sex: Male

DRUGS (3)
  1. JAKAFI [Suspect]
     Indication: MYELOFIBROSIS
     Dosage: 10 MG, BID
     Route: 048
     Dates: start: 201202, end: 201304
  2. CARDURA [Concomitant]
  3. HYDREA [Concomitant]

REACTIONS (1)
  - Asthenia [Not Recovered/Not Resolved]
